FAERS Safety Report 12642207 (Version 1)
Quarter: 2016Q3

REPORT INFORMATION
  Report Type: Spontaneous
  Country: US (occurrence: US)
  Receive Date: 20160810
  Receipt Date: 20160810
  Transmission Date: 20161109
  Serious: Yes (Other)
  Sender: FDA-Public Use
  Company Number: US-PFIZER INC-2016378383

PATIENT
  Age: 46 Year
  Sex: Male

DRUGS (20)
  1. HYDRALAZINE [Concomitant]
     Active Substance: HYDRALAZINE HYDROCHLORIDE
     Dosage: UNK
  2. MOBIC [Concomitant]
     Active Substance: MELOXICAM
     Dosage: 15 MG, DAILY (EVERY DAY)
     Route: 048
     Dates: start: 20160405
  3. TRAMADOL. [Concomitant]
     Active Substance: TRAMADOL
     Dosage: 50 MG, AS NEEDED (EVERY 6 HOURS )
     Route: 048
     Dates: start: 20160630
  4. VITAMIN B12 [Concomitant]
     Active Substance: CYANOCOBALAMIN
     Dosage: 1 ML, MONTHLY
     Route: 030
     Dates: start: 20160405
  5. VITAMIN D3 [Concomitant]
     Active Substance: CHOLECALCIFEROL
     Dosage: 1000 IU, DAILY
     Route: 048
     Dates: start: 20160405
  6. HYDROXYCHLOROQUINE [Concomitant]
     Active Substance: HYDROXYCHLOROQUINE
     Dosage: 200 MG, ALTERNATE DAY (EVERY 2 DAYS)
     Route: 048
     Dates: start: 20160405
  7. GABAPENTIN. [Concomitant]
     Active Substance: GABAPENTIN
     Dosage: 600 MG, DAILY (EVERY DAY)
     Route: 048
     Dates: start: 20160630
  8. HYDROXYZINE HCL [Concomitant]
     Active Substance: HYDROXYZINE HYDROCHLORIDE
     Dosage: 100 MG, AS NEEDED (4 TABLET EVERY 6 HOURS )
     Dates: start: 20160405
  9. BACTROBAN [Concomitant]
     Active Substance: MUPIROCIN\MUPIROCIN CALCIUM
     Dosage: 2 % TOPICAL CREAM APPLY BY TOPICAL ROUTE 2 TIMES EVERY DAY
     Route: 061
     Dates: start: 20160630, end: 20160709
  10. NORCO [Concomitant]
     Active Substance: ACETAMINOPHEN\HYDROCODONE BITARTRATE
     Indication: PAIN
     Dosage: 1 DF, AS NEEDED (EVERY 4-6 HOURS )
     Route: 048
     Dates: start: 20160630
  11. EMBEDA [Concomitant]
     Active Substance: MORPHINE SULFATE\NALTREXONE HYDROCHLORIDE
     Dosage: (MORPHINE SULFATE 130 MG, NALTREXONE HYDROCHLORIDE 1.2 MG, EVERY 24 HOURS), 1X/DAY
     Route: 048
     Dates: start: 20160608, end: 20160630
  12. TRAZODONE [Concomitant]
     Active Substance: TRAZODONE HYDROCHLORIDE
     Dosage: 200 MG, DAILY (EVERY DAY AFTER MEALS)
     Route: 048
     Dates: start: 20160405
  13. MYCOPHENOLATE MOFETIL. [Concomitant]
     Active Substance: MYCOPHENOLATE MOFETIL
     Dosage: 500 MG, 2X/DAY
     Route: 048
     Dates: start: 20160405
  14. ZYRTEC [Concomitant]
     Active Substance: CETIRIZINE HYDROCHLORIDE
     Dosage: 20 MG, DAILY (EVERY DAY)
     Route: 048
     Dates: start: 20160608
  15. PERCOCET [Concomitant]
     Active Substance: ACETAMINOPHEN\OXYCODONE HYDROCHLORIDE
     Dosage: (OXYCODONE HYDROCHLORIDE 5 MG, PARACETAMOL 325 MG) UNK, AS NEEDED (1 TABLET EVERY 6 HOURS)
     Route: 048
     Dates: start: 20160608, end: 20160630
  16. LYRICA [Suspect]
     Active Substance: PREGABALIN
     Dosage: 100 MG, 3X/DAY
     Route: 048
     Dates: start: 20160405, end: 20160630
  17. PEPCID [Concomitant]
     Active Substance: FAMOTIDINE
     Dosage: 40 MG, DAILY (EVERY DAY AT BEDTIME)
     Route: 048
     Dates: start: 20160608
  18. XEROFORM [Concomitant]
     Dosage: UNK, DAILY (APPLY TO AFFECTED AREA)
  19. PREDNISONE. [Concomitant]
     Active Substance: PREDNISONE
     Dosage: 15 MG, DAILY (EVERY DAY)
     Route: 048
     Dates: start: 20160405
  20. NUCYNTA [Concomitant]
     Active Substance: TAPENTADOL HYDROCHLORIDE
     Dosage: 200 MG, 2X/DAY (EVERY 12 HOURS)
     Route: 048
     Dates: start: 20160602, end: 20160630

REACTIONS (23)
  - Condition aggravated [Not Recovered/Not Resolved]
  - Rash [Unknown]
  - Fatigue [Unknown]
  - Skin hypopigmentation [Unknown]
  - Scab [Unknown]
  - Pruritus [Unknown]
  - Skin lesion [Recovering/Resolving]
  - Sickle cell anaemia [Unknown]
  - Pleuritic pain [Unknown]
  - Skin exfoliation [Unknown]
  - Cutaneous lupus erythematosus [Unknown]
  - Skin irritation [Unknown]
  - Haemorrhage [Unknown]
  - Back pain [Not Recovered/Not Resolved]
  - Social problem [Unknown]
  - Systemic lupus erythematosus [Not Recovered/Not Resolved]
  - Photosensitivity reaction [Unknown]
  - Arthralgia [Unknown]
  - Iron deficiency anaemia [Unknown]
  - Pain [Unknown]
  - Skin disorder [Recovering/Resolving]
  - Erythema [Unknown]
  - Urticaria [Unknown]
